FAERS Safety Report 5926418-3 (Version None)
Quarter: 2008Q4

REPORT INFORMATION
  Report Type: 
  Country: None (occurrence: None)
  Receive Date: 20081017
  Receipt Date: 20081007
  Transmission Date: 20090506
  Serious: Yes (Death, Hospitalization)
  Sender: FDA-Public Use
  Company Number: GXKR2008GB06360

PATIENT
  Age: 70 Year
  Sex: Male
  Weight: 75 kg

DRUGS (4)
  1. WARFARIN SODIUM [Suspect]
     Indication: DEEP VEIN THROMBOSIS
     Dosage: ORAL
     Route: 048
     Dates: start: 20080529, end: 20080611
  2. BENDROFLUAZIDE (BENDROFLUMETHIAZIDE) [Concomitant]
  3. DILTIAZEM [Concomitant]
  4. IRBESARTAN [Concomitant]

REACTIONS (7)
  - BASAL GANGLIA HAEMORRHAGE [None]
  - FALL [None]
  - HAEMATOMA [None]
  - HEMIPARESIS [None]
  - HYDROCEPHALUS [None]
  - SYNCOPE [None]
  - SYSTOLIC HYPERTENSION [None]
